FAERS Safety Report 16735700 (Version 1)
Quarter: 2019Q3

REPORT INFORMATION
  Report Type: Spontaneous
  Country: US (occurrence: US)
  Receive Date: 20190823
  Receipt Date: 20190823
  Transmission Date: 20191005
  Serious: No
  Sender: FDA-Public Use
  Company Number: US-PFIZER INC-2016365265

PATIENT
  Age: 81 Year
  Sex: Female
  Weight: 77.11 kg

DRUGS (12)
  1. CULTURELLE [Concomitant]
     Active Substance: LACTOBACILLUS RHAMNOSUS
     Dosage: UNK
  2. ATENOLOL. [Concomitant]
     Active Substance: ATENOLOL
     Dosage: 50 MG, UNK
  3. LYRICA [Suspect]
     Active Substance: PREGABALIN
     Indication: ANALGESIC INTERVENTION SUPPORTIVE THERAPY
     Dosage: 450 MG, DAILY (ONE 150MG BY MOUTH IN MORNING AND TWO 150MG AT NIGHT)
     Route: 048
  4. LYRICA [Suspect]
     Active Substance: PREGABALIN
     Indication: HYPOAESTHESIA
  5. HYDROCODONE/ACETAMINOPHEN [Concomitant]
     Active Substance: ACETAMINOPHEN\HYDROCODONE
     Indication: PAIN
     Dosage: 100 MG/325 MG TABLETS ONE PO Q 6-8 HRS PRN
     Route: 048
  6. SKELAXINE [Concomitant]
     Active Substance: ACETAMINOPHEN\CHLORZOXAZONE
     Dosage: 800 MG TABLET 1 PO TID PRN
     Route: 048
  7. NALOXONE /00328002/ [Concomitant]
     Indication: OVERDOSE
     Dosage: 2MG/2ML, SPRAY 1 ML IN EACH NOSTRIL, MAY REPEAT AFTER 3 MINUTES IF NO OR MINIMAL RESPONSE
     Route: 045
  8. NALOXONE [Concomitant]
     Active Substance: NALOXONE
     Dosage: 0.4 MG/ML, (3CC, WITH 23G NEEDLE),INJECT 1 ML , REPEAT AFTER 3 MINUTES IF NO RESPONSE
  9. DIOVAN HCT [Concomitant]
     Active Substance: HYDROCHLOROTHIAZIDE\VALSARTAN
     Dosage: 320/25 TABLET TAKE 1 TABLETS BY MOUTH DAILY
     Route: 048
  10. CALTRATE 600+D [Concomitant]
     Dosage: UNK
  11. LYRICA [Suspect]
     Active Substance: PREGABALIN
     Indication: DRUG THERAPY
     Dosage: 150 MG, THREE TIMES A DAY (ONE IN AM, TWO QHS)
     Route: 048
  12. LYRICA [Suspect]
     Active Substance: PREGABALIN
     Indication: PARAESTHESIA

REACTIONS (1)
  - Impaired driving ability [Not Recovered/Not Resolved]

NARRATIVE: CASE EVENT DATE: 201809
